FAERS Safety Report 21724706 (Version 1)
Quarter: 2022Q4

REPORT INFORMATION
  Report Type: Report from Study
  Country: US (occurrence: US)
  Receive Date: 20221213
  Receipt Date: 20221213
  Transmission Date: 20230113
  Serious: Yes (Hospitalization, Other)
  Sender: FDA-Public Use
  Company Number: US-ABBVIE-22K-163-4347468-00

PATIENT
  Age: 64 Year
  Sex: Male

DRUGS (3)
  1. IMBRUVICA [Suspect]
     Active Substance: IBRUTINIB
     Indication: Chronic lymphocytic leukaemia
     Dosage: MISSED 10-12 DOSES DUE TO TOOTH EXTRACTION.
     Route: 048
     Dates: start: 20210510
  2. IMBRUVICA [Suspect]
     Active Substance: IBRUTINIB
     Indication: Chronic lymphocytic leukaemia
     Dosage: 420 MILLIGRAM
     Route: 048
  3. FLUOROURACIL [Suspect]
     Active Substance: FLUOROURACIL
     Indication: Product used for unknown indication
     Route: 065

REACTIONS (11)
  - White blood cell count decreased [Unknown]
  - Abdominal pain [Unknown]
  - Appendicitis [Unknown]
  - Tooth extraction [Unknown]
  - Precancerous cells present [Unknown]
  - Attention deficit hyperactivity disorder [Unknown]
  - Skin disorder [Unknown]
  - Leukaemia [Unknown]
  - Thermal burn [Unknown]
  - Pain [Unknown]
  - Red blood cell count decreased [Unknown]

NARRATIVE: CASE EVENT DATE: 20221207
